FAERS Safety Report 16965001 (Version 2)
Quarter: 2020Q2

REPORT INFORMATION
  Report Type: Spontaneous
  Country: US (occurrence: US)
  Receive Date: 20191028
  Receipt Date: 20200415
  Transmission Date: 20200713
  Serious: Yes (Other)
  Sender: FDA-Public Use
  Company Number: US-GILEAD-2019-0434669

PATIENT
  Age: 55 Year
  Sex: Male

DRUGS (31)
  1. COZAAR [Concomitant]
     Active Substance: LOSARTAN POTASSIUM
  2. FLEXERIL [CEFIXIME] [Concomitant]
     Active Substance: CEFIXIME
  3. GENVOYA [Concomitant]
     Active Substance: COBICISTAT\ELVITEGRAVIR\EMTRICITABINE\TENOFOVIR ALAFENAMIDE FUMARATE
  4. FLUARIX QUADRIVALENT [Concomitant]
  5. ACETAMINOPHEN. [Concomitant]
     Active Substance: ACETAMINOPHEN
  6. NASALIDE [Concomitant]
     Active Substance: FLUNISOLIDE
  7. ZITHROMAX [Concomitant]
     Active Substance: AZITHROMYCIN DIHYDRATE
  8. VOLTAREN ACTI [Concomitant]
     Active Substance: DICLOFENAC POTASSIUM
  9. CRESTOR [Concomitant]
     Active Substance: ROSUVASTATIN CALCIUM
  10. TENORMIN [Concomitant]
     Active Substance: ATENOLOL
  11. DEXILANT [Concomitant]
     Active Substance: DEXLANSOPRAZOLE
  12. PANTOPRAZOLE [Concomitant]
     Active Substance: PANTOPRAZOLE
  13. COREG [Concomitant]
     Active Substance: CARVEDILOL
  14. AMLODIPINE [Concomitant]
     Active Substance: AMLODIPINE BESYLATE
  15. FLUTICASONE PROPIONATE. [Concomitant]
     Active Substance: FLUTICASONE PROPIONATE
  16. VENTOLIN HFA [Concomitant]
     Active Substance: ALBUTEROL SULFATE
  17. FOSAMAX [Concomitant]
     Active Substance: ALENDRONATE SODIUM
  18. PROTONIX [OMEPRAZOLE] [Concomitant]
     Active Substance: OMEPRAZOLE
  19. ROBITUSSIN A C [Concomitant]
     Active Substance: CODEINE\GUAIFENESIN\PHENIRAMINE MALEATE
  20. HEPATITIS B VACCIN [Concomitant]
     Active Substance: HEPATITIS B VIRUS VACCINE
  21. INFLUENZA [Concomitant]
     Active Substance: INFLUENZA VIRUS VACCINE
  22. TDAP [Concomitant]
     Active Substance: TETANUS TOXOID, REDUCED DIPHTHERIA TOXOID AND ACELLULAR PERTUSSIS VACCINE ADSORBED, TDAP
  23. BUDESONIDE. [Concomitant]
     Active Substance: BUDESONIDE
  24. ATENOLOL. [Concomitant]
     Active Substance: ATENOLOL
  25. HEPATITIS A VACCINE [Concomitant]
     Active Substance: HEPATITIS A VIRUS STRAIN HM175 ANTIGEN (FORMALDEHYDE INACTIVATED)
  26. PNEUMOCOCCAL 13 VALENT VACCINE [Concomitant]
     Active Substance: PNEUMOCOCCAL 13-VALENT CONJUGATE VACCINE
  27. PNEUMOCOCCAL POLYSACCHARIDE VACCINE [Concomitant]
     Active Substance: PNEUMOCOCCAL VACCINE POLYVALENT
  28. LOTRISONE [Concomitant]
     Active Substance: BETAMETHASONE DIPROPIONATE\CLOTRIMAZOLE
  29. PROLIA [Concomitant]
     Active Substance: DENOSUMAB
  30. ATRIPLA [Suspect]
     Active Substance: EFAVIRENZ\EMTRICITABINE\TENOFOVIR DISOPROXIL FUMARATE
     Indication: HIV INFECTION
     Dosage: UNK
     Route: 048
     Dates: start: 201201, end: 201602
  31. TRAZODONE [Concomitant]
     Active Substance: TRAZODONE HYDROCHLORIDE

REACTIONS (9)
  - Economic problem [Unknown]
  - Anxiety [Unknown]
  - Multiple fractures [Unknown]
  - Emotional distress [Unknown]
  - Pain [Unknown]
  - Bone density decreased [Unknown]
  - Osteoporosis [Not Recovered/Not Resolved]
  - Osteoporotic fracture [Unknown]
  - Anhedonia [Unknown]

NARRATIVE: CASE EVENT DATE: 201705
